FAERS Safety Report 9170903 (Version 2)
Quarter: 2013Q2

REPORT INFORMATION
  Report Type: Spontaneous
  Country: US (occurrence: US)
  Receive Date: 20130319
  Receipt Date: 20130530
  Transmission Date: 20140414
  Serious: No
  Sender: FDA-Public Use
  Company Number: US-PFIZER INC-2013087971

PATIENT
  Age: 65 Year
  Sex: Female
  Weight: 109 kg

DRUGS (3)
  1. CELEBREX [Suspect]
     Indication: ARTHRITIS
     Dosage: 200 MG, 2X/DAY
  2. SINGULAIR [Concomitant]
     Indication: ASTHMA
     Dosage: 10 MG, 1X/DAY
  3. SYMBICORT [Concomitant]
     Indication: ASTHMA
     Dosage: UNK, 2X/DAY

REACTIONS (3)
  - Intentional drug misuse [Unknown]
  - Exostosis [Recovered/Resolved]
  - Pain in extremity [Not Recovered/Not Resolved]
